FAERS Safety Report 11232230 (Version 1)
Quarter: 2015Q3

REPORT INFORMATION
  Report Type: Spontaneous
  Country: US (occurrence: US)
  Receive Date: 20150701
  Receipt Date: 20150701
  Transmission Date: 20151125
  Serious: Yes (Other)
  Sender: FDA-Public Use
  Company Number: US-ASTRAZENECA-2015SE62008

PATIENT
  Age: 27137 Day
  Sex: Male
  Weight: 83.5 kg

DRUGS (11)
  1. SUTENT [Concomitant]
     Active Substance: SUNITINIB MALATE
     Route: 048
  2. DOCOSAHEXANOIC ACID/EPA FISH OIL [Concomitant]
     Route: 048
  3. BACTRIM [Concomitant]
     Active Substance: SULFAMETHOXAZOLE\TRIMETHOPRIM
     Dosage: 800-160 MG PER TABLET
  4. FLOMAX [Concomitant]
     Active Substance: TAMSULOSIN HYDROCHLORIDE
     Route: 048
  5. CASODEX [Suspect]
     Active Substance: BICALUTAMIDE
     Route: 048
  6. AMBIEN [Concomitant]
     Active Substance: ZOLPIDEM TARTRATE
     Route: 048
  7. GLUCOSAMINE SULFATE [Concomitant]
     Active Substance: GLUCOSAMINE SULFATE
     Route: 048
  8. SUTENT [Concomitant]
     Active Substance: SUNITINIB MALATE
     Route: 048
  9. GLUCOPHAGE [Concomitant]
     Active Substance: METFORMIN HYDROCHLORIDE
  10. PROSCAR [Concomitant]
     Active Substance: FINASTERIDE
     Route: 048
  11. PRED FORTE [Concomitant]
     Active Substance: PREDNISOLONE ACETATE
     Route: 047

REACTIONS (24)
  - Prostate cancer [Unknown]
  - Cataract [Unknown]
  - Urosepsis [Not Recovered/Not Resolved]
  - Pulmonary mass [Unknown]
  - Ageusia [Unknown]
  - Enterococcal sepsis [Unknown]
  - Diabetes mellitus [Not Recovered/Not Resolved]
  - Cholelithiasis [Unknown]
  - Productive cough [Unknown]
  - Weight decreased [Unknown]
  - Intestinal perforation [Unknown]
  - Hypertension [Not Recovered/Not Resolved]
  - Sinus congestion [Unknown]
  - Glaucoma [Unknown]
  - Decreased appetite [Unknown]
  - Hepatic function abnormal [Unknown]
  - Balance disorder [Unknown]
  - Osteomyelitis [Unknown]
  - Nephrolithiasis [Not Recovered/Not Resolved]
  - Headache [Unknown]
  - Renal cell carcinoma [Not Recovered/Not Resolved]
  - Extradural abscess [Unknown]
  - Inflammation [Unknown]
  - Adrenal mass [Not Recovered/Not Resolved]

NARRATIVE: CASE EVENT DATE: 20140528
